FAERS Safety Report 14161637 (Version 4)
Quarter: 2018Q1

REPORT INFORMATION
  Report Type: Report from Study
  Country: BR (occurrence: BR)
  Receive Date: 20171106
  Receipt Date: 20180127
  Transmission Date: 20180508
  Serious: Yes (Hospitalization)
  Sender: FDA-Public Use
  Company Number: BR-UCBSA-2017044113

PATIENT
  Age: 60 Year
  Sex: Male
  Weight: 86 kg

DRUGS (9)
  1. VITAMIN D [Concomitant]
     Active Substance: CHOLECALCIFEROL
     Indication: PRODUCT USED FOR UNKNOWN INDICATION
     Dosage: UNK UNK, WEEKLY (QW)
     Route: 048
     Dates: start: 2016
  2. DIPROSPAN [Concomitant]
     Active Substance: BETAMETHASONE DIPROPIONATE\BETAMETHASONE SODIUM PHOSPHATE
     Indication: PAIN IN EXTREMITY
     Dosage: UNK
     Route: 030
     Dates: start: 201709
  3. SYNTHROID [Concomitant]
     Active Substance: LEVOTHYROXINE SODIUM
     Indication: THYROID DISORDER
     Dosage: 50 ?G, ONCE DAILY (QD)
     Route: 048
     Dates: start: 2016
  4. CERTOLIZUMAB PEGOL [Suspect]
     Active Substance: CERTOLIZUMAB PEGOL
     Indication: RHEUMATOID ARTHRITIS
     Dosage: 400 MG, EV 2 WEEKS(QOW)
     Dates: start: 2016
  5. GLIFAGE [Concomitant]
     Active Substance: METFORMIN HYDROCHLORIDE
     Indication: DIABETES MELLITUS
     Dosage: 500 MG, ONCE DAILY (QD)
     Route: 048
     Dates: start: 2015
  6. TAMSULOSIN HYDROCHLORIDE. [Concomitant]
     Active Substance: TAMSULOSIN HYDROCHLORIDE
     Indication: PROSTATIC DISORDER
     Dosage: 0.4 MG, ONCE DAILY (QD)
     Route: 048
     Dates: start: 201708
  7. FLUOXETIN [Concomitant]
     Active Substance: FLUOXETINE HYDROCHLORIDE
     Indication: STRESS
     Dosage: 1 DF, ONCE DAILY (QD)
     Route: 048
     Dates: start: 201610
  8. DIPYRONE [Concomitant]
     Active Substance: DIPYRONE
     Indication: ANALGESIC THERAPY
     Dosage: 40 GTT, UNK
     Route: 048
     Dates: start: 20171027
  9. CERTOLIZUMAB PEGOL [Suspect]
     Active Substance: CERTOLIZUMAB PEGOL
     Dosage: 200 MG, EV 15 DAYS
     Dates: end: 20171203

REACTIONS (10)
  - Cataract [Recovered/Resolved]
  - Stress [Recovered/Resolved]
  - Enuresis [Not Recovered/Not Resolved]
  - Prostatomegaly [Not Recovered/Not Resolved]
  - Constipation [Not Recovered/Not Resolved]
  - Rheumatoid arthritis [Unknown]
  - Drug dose omission [Unknown]
  - Arthropathy [Recovered/Resolved]
  - Pain in extremity [Recovered/Resolved]
  - Muscular weakness [Not Recovered/Not Resolved]

NARRATIVE: CASE EVENT DATE: 2016
